FAERS Safety Report 6673995-3 (Version None)
Quarter: 2010Q2

REPORT INFORMATION
  Report Type: 
  Country: None (occurrence: None)
  Receive Date: 20100409
  Receipt Date: 20100202
  Transmission Date: 20101027
  Serious: No
  Sender: FDA-Public Use
  Company Number: A0840270A

PATIENT
  Age: 25 Year
  Sex: Female

DRUGS (1)
  1. EXTINA [Suspect]
     Indication: DERMATOSIS
     Route: 061

REACTIONS (2)
  - BURNING SENSATION [None]
  - PAIN [None]
